FAERS Safety Report 8516620 (Version 3)
Quarter: 2015Q4

REPORT INFORMATION
  Report Type: Spontaneous
  Country: US (occurrence: US)
  Receive Date: 20120417
  Receipt Date: 20151230
  Transmission Date: 20160305
  Serious: No
  Sender: FDA-Public Use
  Company Number: US-ASTRAZENECA-2011SE59801

PATIENT
  Age: 75 Year
  Sex: Female

DRUGS (30)
  1. METOPROLOL [Suspect]
     Active Substance: METOPROLOL
     Indication: ATRIAL FIBRILLATION
     Route: 065
     Dates: end: 20121127
  2. LOMOTIL [Concomitant]
     Active Substance: ATROPINE SULFATE\DIPHENOXYLATE HYDROCHLORIDE
     Indication: ABDOMINAL DISCOMFORT
     Dosage: 2.5 MG, 1-2 AS NEEDED
  3. VITAMIN E [Concomitant]
     Active Substance: .ALPHA.-TOCOPHEROL
  4. SALINE NASAL SPRAY [Concomitant]
     Active Substance: SODIUM CHLORIDE
     Dosage: DAILY
  5. FLECAINIDE [Concomitant]
     Active Substance: FLECAINIDE
     Dosage: 50 MG, 1-2 TIMES DAILY
  6. ABREVA [Concomitant]
     Active Substance: DOCOSANOL
     Indication: ORAL PAIN
     Dosage: AS MUCH AS NEEDED
     Route: 048
  7. CORRECTOL NOS [Concomitant]
     Active Substance: BISACODYL OR DOCUSATE SODIUM
     Indication: CONSTIPATION
     Dosage: WHEN NEEDED
  8. VITAMIN C [Concomitant]
     Active Substance: ASCORBIC ACID
  9. TUMS EX [Concomitant]
     Active Substance: CALCIUM CARBONATE
     Dosage: 750 MG CLACIUM EA., TWO TABS TWO TIMES A DAY
  10. MINERAL ICE [Concomitant]
     Dosage: AS NEEDED, SEVERAL TIMES A DAY
  11. PAIN PATCHES [Concomitant]
     Dosage: AS NEEDED
  12. SENNA [Concomitant]
     Active Substance: SENNA LEAF\SENNOSIDES\SENNOSIDES A AND B
     Indication: CONSTIPATION
  13. NEXIUM [Suspect]
     Active Substance: ESOMEPRAZOLE MAGNESIUM
     Route: 048
  14. ASPIRIN. [Concomitant]
     Active Substance: ASPIRIN
  15. ARTIFICIAL TEARS [Concomitant]
     Active Substance: GLYCERIN\HYPROMELLOSES\POLYETHYLENE GLYCOL 400
     Dosage: 2-3 TIMES A DAY
  16. TYLENOL EXTRA STRENGTH [Concomitant]
     Active Substance: ACETAMINOPHEN
     Dosage: 500 MG, 2-3 AS NEEDED/TO 4000 MG
  17. TEMAZEPAM. [Concomitant]
     Active Substance: TEMAZEPAM
     Indication: CIRCADIAN RHYTHM SLEEP DISORDER
  18. NASALCROM [Concomitant]
     Active Substance: CROMOLYN SODIUM
     Dosage: DAILY
  19. COUMADIN [Concomitant]
     Active Substance: WARFARIN SODIUM
     Dates: end: 20130111
  20. TRAMADOL. [Concomitant]
     Active Substance: TRAMADOL
     Dosage: 50 MG, 4-5 TIMES PER DAY
  21. VITAMINS NOS [Concomitant]
     Active Substance: VITAMINS
     Dosage: DAILY
  22. ANBESOL REGULAR STRENGTH GEL [Concomitant]
     Active Substance: BENZOCAINE
     Dosage: AS MUCH AS NEEDED
  23. LOTRIMIN [Concomitant]
     Active Substance: CLOTRIMAZOLE
     Indication: TINEA PEDIS
     Dosage: TWO TIMES AS NEEDED
  24. OMEPRAZOLE. [Suspect]
     Active Substance: OMEPRAZOLE
     Route: 048
  25. LODINE [Concomitant]
     Active Substance: ETODOLAC
     Dosage: 400/300MG, 1 EA PER DAY
  26. GLUCOSAMINE AND CHONDROITIN [Concomitant]
     Dosage: 1500/1188, 2,2 PER DAY
  27. ACYCLOVIR. [Concomitant]
     Active Substance: ACYCLOVIR
     Indication: STOMATITIS
     Dosage: 400 MG, 3 AT ONCE
  28. ETODOLAC. [Concomitant]
     Active Substance: ETODOLAC
     Indication: INFLAMMATION
  29. TYLENOL ARTHRITIS PAIN [Concomitant]
     Active Substance: ACETAMINOPHEN
     Dosage: 650 MG, 1-2 AS NEEDED
  30. VITAMIN D [Concomitant]
     Active Substance: CHOLECALCIFEROL

REACTIONS (7)
  - Arthritis [Not Recovered/Not Resolved]
  - Drug hypersensitivity [Recovered/Resolved]
  - Off label use [Unknown]
  - Drug dose omission [Unknown]
  - Gastrointestinal ulcer [Not Recovered/Not Resolved]
  - Gastrooesophageal reflux disease [Unknown]
  - Dyspnoea [Unknown]

NARRATIVE: CASE EVENT DATE: 2012
